FAERS Safety Report 8110930-5 (Version None)
Quarter: 2012Q1

REPORT INFORMATION
  Report Type: 
  Country: None (occurrence: None)
  Receive Date: 20120203
  Receipt Date: 20100511
  Transmission Date: 20120608
  Serious: No
  Sender: FDA-Public Use
  Company Number: US-GLAXOSMITHKLINE-A0859146A

PATIENT
  Age: 34 Year
  Sex: Female
  Weight: 118.2 kg

DRUGS (5)
  1. LAMICTAL [Suspect]
     Indication: CONVULSION
     Dosage: 150MG TWICE PER DAY
     Route: 048
     Dates: start: 20070101
  2. VITAMIN AND MINERAL PRENATAL SUPPLEMENT W/ FOLIC ACID CAP [Concomitant]
     Dosage: 1TAB PER DAY
     Route: 048
  3. SERTRALINE HYDROCHLORIDE [Concomitant]
     Indication: PRODUCT USED FOR UNKNOWN INDICATION
     Dosage: 100MG PER DAY
     Dates: start: 20080101
  4. FOLIC ACID [Concomitant]
  5. NICOTINE [Concomitant]

REACTIONS (2)
  - MATERNAL EXPOSURE DURING PREGNANCY [None]
  - LIVE BIRTH [None]
